FAERS Safety Report 22367772 (Version 1)
Quarter: 2023Q2

REPORT INFORMATION
  Report Type: Spontaneous
  Country: US (occurrence: US)
  Receive Date: 20230525
  Receipt Date: 20230525
  Transmission Date: 20230722
  Serious: Yes (Hospitalization)
  Sender: FDA-Public Use
  Company Number: US-APIL-2315366US

PATIENT
  Sex: Female
  Weight: 63.502 kg

DRUGS (10)
  1. LINZESS [Suspect]
     Active Substance: LINACLOTIDE
     Indication: Irritable bowel syndrome
     Route: 048
     Dates: start: 20201007, end: 20230509
  2. LISINOPRIL [Concomitant]
     Active Substance: LISINOPRIL
     Indication: Hypertension
  3. DILANTIN [Concomitant]
     Active Substance: PHENYTOIN
     Indication: Seizure
  4. FYCOMPA [Concomitant]
     Active Substance: PERAMPANEL
     Indication: Seizure
  5. XCOPRI [Concomitant]
     Active Substance: CENOBAMATE
     Indication: Seizure
  6. CYMBALTA [Concomitant]
     Active Substance: DULOXETINE HYDROCHLORIDE
     Indication: Depression
  7. CYMBALTA [Concomitant]
     Active Substance: DULOXETINE HYDROCHLORIDE
     Indication: Anxiety
  8. ABILIFY [Concomitant]
     Active Substance: ARIPIPRAZOLE
     Indication: Depression
  9. ABILIFY [Concomitant]
     Active Substance: ARIPIPRAZOLE
     Indication: Anxiety
  10. OMEPRAZOLE [Concomitant]
     Active Substance: OMEPRAZOLE
     Indication: Antacid therapy

REACTIONS (7)
  - Pneumonia aspiration [Recovered/Resolved]
  - Abdominal discomfort [Recovered/Resolved]
  - Eating disorder [Recovered/Resolved]
  - Nausea [Recovered/Resolved]
  - Off label use [Unknown]
  - Abdominal pain upper [Recovered/Resolved]
  - Muscle spasms [Recovered/Resolved]

NARRATIVE: CASE EVENT DATE: 20230501
